FAERS Safety Report 25754564 (Version 1)
Quarter: 2025Q3

REPORT INFORMATION
  Report Type: Spontaneous
  Country: EU (occurrence: EU)
  Receive Date: 20250903
  Receipt Date: 20250903
  Transmission Date: 20251021
  Serious: No
  Sender: ALKEM
  Company Number: EU-ALKEM LABORATORIES LIMITED-DE-ALKEM-2024-22768

PATIENT
  Age: 23 Year

DRUGS (2)
  1. PREGABALIN [Suspect]
     Active Substance: PREGABALIN
     Indication: Epilepsy
     Dosage: 50 MILLIGRAM, QD
     Route: 065
  2. PREGABALIN [Suspect]
     Active Substance: PREGABALIN
     Dosage: 200 MILLIGRAM, QD (INCREASED)
     Route: 065

REACTIONS (1)
  - Myoclonus [Not Recovered/Not Resolved]
